FAERS Safety Report 7132186-2 (Version None)
Quarter: 2010Q4

REPORT INFORMATION
  Report Type: 
  Country: None (occurrence: None)
  Receive Date: 20101129
  Receipt Date: 20101129
  Transmission Date: 20110411
  Serious: Yes (Other)
  Sender: FDA-Public Use
  Company Number: None

PATIENT
  Sex: Female
  Weight: 58.9676 kg

DRUGS (6)
  1. LANSOPRAZOLE [Suspect]
     Indication: EOSINOPHILIC OESOPHAGITIS
     Dosage: BID ORALLY DISINTEGRATING
     Route: 048
     Dates: start: 20101119, end: 20101121
  2. .. [Concomitant]
  3. .. [Concomitant]
  4. ... [Concomitant]
  5. ... [Concomitant]
  6. ... [Concomitant]

REACTIONS (1)
  - ABDOMINAL PAIN [None]
